FAERS Safety Report 7093576-X (Version None)
Quarter: 2010Q4

REPORT INFORMATION
  Report Type: 
  Country: None (occurrence: None)
  Receive Date: 20101101
  Receipt Date: 20101014
  Transmission Date: 20110411
  Serious: Yes (Other)
  Sender: FDA-Public Use
  Company Number: ACO_01836_2010

PATIENT
  Sex: Male
  Weight: 97.5234 kg

DRUGS (29)
  1. AMPYRA [Suspect]
     Indication: MULTIPLE SCLEROSIS
     Dosage: (10 MG BID ORAL) (10 MG BID W/WO FOOD EVERY 12 HOURS ORAL)
     Route: 048
     Dates: start: 20100715, end: 20100805
  2. AMPYRA [Suspect]
     Indication: MULTIPLE SCLEROSIS
     Dosage: (10 MG BID ORAL) (10 MG BID W/WO FOOD EVERY 12 HOURS ORAL)
     Route: 048
     Dates: start: 20100816
  3. AMITIZA [Suspect]
     Indication: COLITIS
     Dosage: 24 UG BID, WITH FOOD ORAL
     Route: 048
     Dates: start: 20100626, end: 20100805
  4. TYSABRI [Concomitant]
  5. ACETAMINOPHEN AND HYDROCODONE BITARTRATE [Concomitant]
  6. DIAZEPAM [Concomitant]
  7. TIZANIDINE HCL [Concomitant]
  8. BACLOFEN [Concomitant]
  9. CYMBALTA [Concomitant]
  10. FLOMAX /01280302/ [Concomitant]
  11. VESICARE [Concomitant]
  12. GLYCOLAX [Concomitant]
  13. GABAPENTIN [Concomitant]
  14. AMBIEN [Concomitant]
  15. ADVAIR DISKUS 100/50 [Concomitant]
  16. FLUTICASONE PROPIONATE [Concomitant]
  17. LOTREL [Concomitant]
  18. INSULIN [Concomitant]
  19. GLYBURIDE [Concomitant]
  20. FLUCONAZOLE [Concomitant]
  21. CLARITIN /00917501/ [Concomitant]
  22. PRILOSEC [Concomitant]
  23. MULTI-VITAMINS [Concomitant]
  24. B-COMPLEX /01523901/ [Concomitant]
  25. POTASSIUM GLUCONATE TAB [Concomitant]
  26. FISH OIL [Concomitant]
  27. DOCUSATE SODIUM [Concomitant]
  28. SENNA LAXATIVE /00571901/ [Concomitant]
  29. RED YEAST RICE [Concomitant]

REACTIONS (6)
  - ABDOMINAL DISTENSION [None]
  - ABDOMINAL PAIN [None]
  - FUNGAL OESOPHAGITIS [None]
  - MOVEMENT DISORDER [None]
  - NEPHROLITHIASIS [None]
  - RENAL PAIN [None]
